FAERS Safety Report 20346440 (Version 2)
Quarter: 2022Q1

REPORT INFORMATION
  Report Type: Spontaneous
  Country: US (occurrence: US)
  Receive Date: 20220118
  Receipt Date: 20220121
  Transmission Date: 20220423
  Serious: Yes (Other)
  Sender: FDA-Public Use
  Company Number: US-PHARMING-PHAUS2022000044

PATIENT

DRUGS (2)
  1. RUCONEST [Suspect]
     Active Substance: HUMAN C1-ESTERASE INHIBITOR
     Indication: Hereditary angioedema
     Dosage: 3500 IU, PRN
     Route: 042
     Dates: start: 20180110
  2. TAKHZYRO [Concomitant]
     Active Substance: LANADELUMAB-FLYO
     Indication: Product used for unknown indication

REACTIONS (5)
  - Respiratory tract oedema [Recovered/Resolved]
  - Cough [Unknown]
  - Wheezing [Unknown]
  - Pulmonary pain [Unknown]
  - Back pain [Unknown]

NARRATIVE: CASE EVENT DATE: 20211226
